FAERS Safety Report 6540006-X (Version None)
Quarter: 2010Q1

REPORT INFORMATION
  Report Type: 
  Country: None (occurrence: None)
  Receive Date: 20100115
  Receipt Date: 20100111
  Transmission Date: 20100710
  Serious: Yes (Death, Hospitalization)
  Sender: FDA-Public Use
  Company Number: PHHY2009GB55416

PATIENT
  Sex: Male

DRUGS (4)
  1. CLOZARIL [Suspect]
     Indication: SCHIZOPHRENIA
     Dosage: UNK
     Dates: start: 20060901
  2. CLOZARIL [Suspect]
     Dosage: 400 MG, UNK
     Route: 048
  3. DEPAKOTE [Concomitant]
     Dosage: 500 MG, UNK
     Route: 048
  4. AMISULPRIDE [Concomitant]
     Dosage: 600 MG, UNK
     Route: 048

REACTIONS (2)
  - PNEUMONIA [None]
  - VENOUS INSUFFICIENCY [None]
